FAERS Safety Report 5521475-0 (Version None)
Quarter: 2007Q4

REPORT INFORMATION
  Report Type: 
  Country: None (occurrence: None)
  Receive Date: 20071119
  Receipt Date: 20071108
  Transmission Date: 20080405
  Serious: Yes (Other)
  Sender: FDA-Public Use
  Company Number: ES-PFIZER INC-2007093880

PATIENT
  Age: 68 Year
  Sex: Male

DRUGS (3)
  1. SOMAVERT [Suspect]
     Route: 058
  2. DIANBEN [Concomitant]
  3. PERINDOPRIL ERBUMINE [Concomitant]

REACTIONS (2)
  - INJECTION SITE HAEMORRHAGE [None]
  - THROMBOSIS [None]
